FAERS Safety Report 21592175 (Version 3)
Quarter: 2023Q1

REPORT INFORMATION
  Report Type: Spontaneous
  Country: MX (occurrence: MX)
  Receive Date: 20221114
  Receipt Date: 20230111
  Transmission Date: 20230418
  Serious: Yes (Other)
  Sender: FDA-Public Use
  Company Number: MX-UCBSA-2022065318

PATIENT
  Sex: Female

DRUGS (1)
  1. CIMZIA [Suspect]
     Active Substance: CERTOLIZUMAB PEGOL
     Indication: Product used for unknown indication
     Dosage: 400 MILLIGRAM, MONTHLY (QM)
     Route: 058
     Dates: start: 2019

REACTIONS (2)
  - Brain neoplasm [Unknown]
  - Surgery [Unknown]
